FAERS Safety Report 9729028 (Version 2)
Quarter: 2014Q1

REPORT INFORMATION
  Report Type: Spontaneous
  Country: US (occurrence: US)
  Receive Date: 20131204
  Receipt Date: 20140121
  Transmission Date: 20141002
  Serious: Yes (Other)
  Sender: FDA-Public Use
  Company Number: US-TEVA-448300USA

PATIENT
  Age: 52 Year
  Sex: Female
  Weight: 75.82 kg

DRUGS (5)
  1. PARAGARD 380A [Suspect]
     Indication: CONTRACEPTION
     Route: 015
     Dates: start: 20080725, end: 20131125
  2. STEROIDS [Concomitant]
  3. PROGESTERONE [Concomitant]
     Indication: MENOPAUSAL SYMPTOMS
  4. NATURE THROID [Concomitant]
  5. VIVELLE-DOT [Concomitant]
     Indication: MENOPAUSAL SYMPTOMS
     Route: 062

REACTIONS (5)
  - Embedded device [Not Recovered/Not Resolved]
  - Haemorrhage [Unknown]
  - Device dislocation [Recovered/Resolved]
  - Device breakage [Not Recovered/Not Resolved]
  - Metrorrhagia [Unknown]
